FAERS Safety Report 6931304-6 (Version None)
Quarter: 2010Q3

REPORT INFORMATION
  Report Type: 
  Country: None (occurrence: None)
  Receive Date: 20100818
  Receipt Date: 20100805
  Transmission Date: 20110219
  Serious: Yes (Hospitalization, Other)
  Sender: FDA-Public Use
  Company Number: US-ELI_LILLY_AND_COMPANY-US201008001949

PATIENT
  Sex: Female

DRUGS (5)
  1. HUMALOG [Suspect]
     Indication: TYPE 2 DIABETES MELLITUS
     Dosage: 15 U, 1-15 UNITS DAILY
     Dates: start: 20000101
  2. HUMULIN N [Suspect]
     Indication: TYPE 2 DIABETES MELLITUS
     Dosage: 66 U, 20 UNITS IN THE MORNING, 1-15 UNITS AT SUPPER, 66 UNITS AT BEDTIME
     Dates: start: 20000101
  3. BROVANA [Concomitant]
  4. ALBUTEROL SULFATE [Concomitant]
     Dosage: 0.83 MG, UNKNOWN
  5. PROVENTIL /00139502/ [Concomitant]

REACTIONS (5)
  - BLOOD GLUCOSE DECREASED [None]
  - BLOOD GLUCOSE INCREASED [None]
  - BRONCHITIS CHRONIC [None]
  - CHRONIC OBSTRUCTIVE PULMONARY DISEASE [None]
  - WRONG DRUG ADMINISTERED [None]
